FAERS Safety Report 14627070 (Version 5)
Quarter: 2021Q2

REPORT INFORMATION
  Report Type: Spontaneous
  Country: US (occurrence: US)
  Receive Date: 20180312
  Receipt Date: 20210428
  Transmission Date: 20210716
  Serious: Yes (Death, Hospitalization, Other)
  Sender: FDA-Public Use
  Company Number: US-ASTRAZENECA-2018SE29325

PATIENT
  Age: 21229 Day
  Sex: Male

DRUGS (103)
  1. NEXIUM [Suspect]
     Active Substance: ESOMEPRAZOLE MAGNESIUM
     Indication: DYSPEPSIA
     Route: 048
     Dates: start: 2014, end: 2017
  2. NEXIUM [Suspect]
     Active Substance: ESOMEPRAZOLE MAGNESIUM
     Indication: DYSPEPSIA
     Dosage: 20.0MG UNKNOWN
     Route: 048
     Dates: start: 2009
  3. NEXIUM [Suspect]
     Active Substance: ESOMEPRAZOLE MAGNESIUM
     Indication: DYSPEPSIA
     Dosage: 40.0MG UNKNOWN
     Route: 048
     Dates: start: 20110424
  4. NEXIUM [Suspect]
     Active Substance: ESOMEPRAZOLE MAGNESIUM
     Indication: DYSPEPSIA
     Dosage: GENERIC 40.0MG UNKNOWN
     Route: 065
     Dates: start: 2015
  5. NEXIUM [Suspect]
     Active Substance: ESOMEPRAZOLE MAGNESIUM
     Indication: DYSPEPSIA
     Dosage: 40.0MG UNKNOWN
     Route: 048
     Dates: start: 2009, end: 2018
  6. ALBUTEROL. [Concomitant]
     Active Substance: ALBUTEROL
     Indication: COUGH
     Dosage: INHALE 2 PUFFS EVERY 6 HOURS AS NEEDED
     Route: 065
     Dates: start: 2015
  7. PATANOL [Concomitant]
     Active Substance: OLOPATADINE HYDROCHLORIDE
     Indication: EYE DISORDER
     Route: 065
     Dates: start: 2014
  8. GOLYTELY [Concomitant]
     Active Substance: POLYETHYLENE GLYCOL 3350\POTASSIUM CHLORIDE\SODIUM BICARBONATE\SODIUM CHLORIDE\SODIUM SULFATE
  9. VANCOMYCIN [Concomitant]
     Active Substance: VANCOMYCIN
     Dates: start: 20180616
  10. CLAVULANATE [Concomitant]
     Active Substance: CLAVULANIC ACID
  11. HYDROXYZINE [Concomitant]
     Active Substance: HYDROXYZINE HYDROCHLORIDE
     Dates: start: 20200814
  12. TIZANIDINE. [Concomitant]
     Active Substance: TIZANIDINE
     Dates: start: 20200814
  13. PREDNISONE. [Concomitant]
     Active Substance: PREDNISONE
     Dates: start: 20191216
  14. CLOTRIAMAZOLE?BETAMETHASONE [Concomitant]
     Dates: start: 20191216
  15. NEXIUM [Suspect]
     Active Substance: ESOMEPRAZOLE MAGNESIUM
     Indication: DYSPEPSIA
     Dosage: GENERIC 40.0MG UNKNOWN
     Route: 065
     Dates: start: 2018
  16. NEXIUM [Suspect]
     Active Substance: ESOMEPRAZOLE MAGNESIUM
     Indication: DYSPEPSIA
     Dosage: GENERIC 40.0MG UNKNOWN
     Route: 048
     Dates: start: 20190802
  17. MULTIVITAMINS [Concomitant]
     Active Substance: VITAMINS
     Indication: ROUTINE HEALTH MAINTENANCE
     Route: 048
     Dates: start: 20200820
  18. QVAR [Concomitant]
     Active Substance: BECLOMETHASONE DIPROPIONATE
     Dosage: 80MCG/ACT INHALE 1 PUFF 2 TIMES DAILY
     Route: 065
     Dates: start: 2014
  19. QUETIAPINE. [Concomitant]
     Active Substance: QUETIAPINE
     Dates: start: 20180618
  20. OXYCODONE [Concomitant]
     Active Substance: OXYCODONE
     Dates: start: 20180618
  21. ONDASETRON [Concomitant]
     Active Substance: ONDANSETRON
     Dates: start: 20200814
  22. CEFUROXIME. [Concomitant]
     Active Substance: CEFUROXIME
     Dates: start: 20191216
  23. FOLEY [Concomitant]
     Dates: start: 20191216
  24. OXYCODONE AND ACETAMINOPHEN [Concomitant]
     Active Substance: ACETAMINOPHEN\OXYCODONE HYDROCHLORIDE
     Dosage: 5MG/325MG
     Dates: start: 20170207
  25. NEXIUM [Suspect]
     Active Substance: ESOMEPRAZOLE MAGNESIUM
     Indication: DYSPEPSIA
     Dosage: 40.0MG UNKNOWN
     Route: 048
     Dates: start: 20160725
  26. NEXIUM [Suspect]
     Active Substance: ESOMEPRAZOLE MAGNESIUM
     Indication: DYSPEPSIA
     Dosage: 20.0MG UNKNOWN
     Route: 048
     Dates: start: 2009, end: 2018
  27. PROPRANOLOL [Concomitant]
     Active Substance: PROPRANOLOL HYDROCHLORIDE
     Indication: HYPERTENSION
     Route: 065
     Dates: start: 2014, end: 2016
  28. LOSARTAN. [Concomitant]
     Active Substance: LOSARTAN
     Indication: HYPERTENSION
     Route: 048
     Dates: start: 2014, end: 2016
  29. PROSCAR [Concomitant]
     Active Substance: FINASTERIDE
     Route: 048
  30. PYRIDIUM [Concomitant]
     Active Substance: PHENAZOPYRIDINE
     Indication: PAIN
     Dates: start: 20200814
  31. TUBERCULIN NOS [Concomitant]
     Active Substance: TUBERCULIN PURIFIED PROTEIN DERIVATIVE
  32. GUAIFENSIN [Concomitant]
     Active Substance: GUAIFENESIN
     Dates: start: 20160725
  33. VALIUM [Concomitant]
     Active Substance: DIAZEPAM
     Dates: start: 20200814
  34. CETRIZINE [Concomitant]
     Active Substance: CETIRIZINE HYDROCHLORIDE
     Dates: start: 20200814
  35. HYDROCORTISONE. [Concomitant]
     Active Substance: HYDROCORTISONE
     Dates: start: 20191216
  36. CLONAZEPAM. [Concomitant]
     Active Substance: CLONAZEPAM
     Indication: SEIZURE
     Route: 048
     Dates: start: 2014, end: 2017
  37. HYDROCODONE/ACETAMINOPHEN [Concomitant]
     Active Substance: ACETAMINOPHEN\HYDROCODONE
     Dosage: 7.5?325MG1.0DF EVERY 4 ? 6 HOURS
     Route: 048
  38. HYDRALAZINE HCL [Concomitant]
     Active Substance: HYDRALAZINE HYDROCHLORIDE
     Route: 065
  39. CIPROFLOXACIN. [Concomitant]
     Active Substance: CIPROFLOXACIN
  40. GLUCAGON. [Concomitant]
     Active Substance: GLUCAGON
  41. DILACOR [Concomitant]
  42. JANUVIA [Concomitant]
     Active Substance: SITAGLIPTIN PHOSPHATE
  43. CYMBATLA [Concomitant]
  44. TRIAMCINOLONE [Concomitant]
     Active Substance: TRIAMCINOLONE
     Dates: start: 20200814
  45. COREG [Concomitant]
     Active Substance: CARVEDILOL
     Dates: start: 20200814
  46. ACETAZOLAMIDE. [Concomitant]
     Active Substance: ACETAZOLAMIDE
     Dates: start: 20200814
  47. NEOMYCIN. [Concomitant]
     Active Substance: NEOMYCIN
     Dates: start: 20200814
  48. GABAPENTIN. [Concomitant]
     Active Substance: GABAPENTIN
     Dates: start: 20200814
  49. OSELTAMIVIR [Concomitant]
     Active Substance: OSELTAMIVIR
     Dates: start: 20191216
  50. DEXTROMETHORPHAN?GUAIFENESIN [Concomitant]
     Active Substance: DEXTROMETHORPHAN\GUAIFENESIN
     Dates: start: 20191216
  51. SOLAQUIN [Concomitant]
     Dates: start: 20191216
  52. LIDEX [Concomitant]
     Active Substance: FLUOCINONIDE
     Dosage: APPLY TOPICALLY 2 TIMES DAILY
     Route: 065
  53. KLOR?CON [Concomitant]
     Active Substance: POTASSIUM CHLORIDE
     Indication: PAIN
     Dates: start: 20200814
  54. FERROUS SULFATE. [Concomitant]
     Active Substance: FERROUS SULFATE
     Route: 065
  55. TESSALON [Concomitant]
     Active Substance: BENZONATATE
  56. FLONASE [Concomitant]
     Active Substance: FLUTICASONE PROPIONATE
     Dates: start: 20200814
  57. MONTELUKAST [Concomitant]
     Active Substance: MONTELUKAST SODIUM
     Dates: start: 20200814
  58. COLESTIPOL [Concomitant]
     Active Substance: COLESTIPOL
     Dates: start: 20200814
  59. MUPIROCIN. [Concomitant]
     Active Substance: MUPIROCIN
     Dates: start: 20200814
  60. ONDANSETRON HCL [Concomitant]
     Active Substance: ONDANSETRON HYDROCHLORIDE
     Dates: start: 20191216
  61. FOLEX [Concomitant]
     Dates: start: 20191216
  62. MAGNESIUM OXIDE. [Concomitant]
     Active Substance: MAGNESIUM OXIDE
     Dates: start: 20191216
  63. MECLIZINE [Concomitant]
     Active Substance: MECLIZINE HYDROCHLORIDE
     Dates: start: 20191216
  64. NEXIUM [Suspect]
     Active Substance: ESOMEPRAZOLE MAGNESIUM
     Indication: DYSPEPSIA
     Dosage: 40.0MG UNKNOWN
     Route: 048
     Dates: start: 2009
  65. NEXIUM [Suspect]
     Active Substance: ESOMEPRAZOLE MAGNESIUM
     Indication: DYSPEPSIA
     Dosage: GENERIC 40.0MG UNKNOWN
     Route: 065
     Dates: start: 20150624
  66. AMLODIPINE [Concomitant]
     Active Substance: AMLODIPINE BESYLATE
     Indication: HYPERTENSION
     Route: 048
     Dates: start: 2014, end: 2017
  67. FUROSEMIDE. [Concomitant]
     Active Substance: FUROSEMIDE
     Indication: FLUID RETENTION
     Route: 048
     Dates: start: 2014, end: 2016
  68. FUROSEMIDE. [Concomitant]
     Active Substance: FUROSEMIDE
     Indication: PERIPHERAL SWELLING
     Route: 048
     Dates: start: 2014, end: 2016
  69. LORATADINE. [Concomitant]
     Active Substance: LORATADINE
     Indication: HYPERSENSITIVITY
     Route: 048
     Dates: start: 2014, end: 2017
  70. LIDOCAINE. [Concomitant]
     Active Substance: LIDOCAINE
     Indication: CARDIAC DISORDER
     Route: 065
     Dates: start: 2014
  71. TERAZOSIN [Concomitant]
     Active Substance: TERAZOSIN HYDROCHLORIDE
     Indication: HYPERTENSION
     Route: 048
     Dates: start: 2014
  72. QUESTRAN [Concomitant]
     Active Substance: CHOLESTYRAMINE
     Route: 065
  73. LOMOTIL [Concomitant]
     Active Substance: ATROPINE SULFATE\DIPHENOXYLATE HYDROCHLORIDE
     Dosage: 2.5?0.025 MG
     Route: 048
  74. PYRIDIUM [Concomitant]
     Active Substance: PHENAZOPYRIDINE
     Indication: PAIN
     Route: 048
  75. KLOR?CON [Concomitant]
     Active Substance: POTASSIUM CHLORIDE
     Indication: PAIN
     Route: 048
  76. CEFTRIAXONE. [Concomitant]
     Active Substance: CEFTRIAXONE
  77. VITAMIN B12 [Concomitant]
     Active Substance: CYANOCOBALAMIN
     Dates: start: 20180615
  78. TRESIBA [Concomitant]
     Active Substance: INSULIN DEGLUDEC
  79. TAMSULOSIN [Concomitant]
     Active Substance: TAMSULOSIN
     Dates: start: 20200814
  80. PANCRELIPASE. [Concomitant]
     Active Substance: PANCRELIPASE
     Dosage: 4MG
     Dates: start: 20170207
  81. CLEOCIN [Concomitant]
     Active Substance: CLINDAMYCIN PHOSPHATE
  82. PROTONIX [Concomitant]
     Active Substance: PANTOPRAZOLE SODIUM
  83. BUSPIRONE HCL [Concomitant]
     Active Substance: BUSPIRONE HYDROCHLORIDE
     Dosage: 8.0MG EVERY 8 ? 12 HOURS
     Route: 048
  84. SILVADENE [Concomitant]
     Active Substance: SILVER SULFADIAZINE
  85. CYCLOBENZAPRINE. [Concomitant]
     Active Substance: CYCLOBENZAPRINE
  86. OMEPRAZOLE. [Concomitant]
     Active Substance: OMEPRAZOLE
  87. KONSYL [Concomitant]
     Active Substance: PSYLLIUM HUSK
  88. PHENAZOPYRIDINE. [Concomitant]
     Active Substance: PHENAZOPYRIDINE
  89. OLOPATADINE. [Concomitant]
     Active Substance: OLOPATADINE
     Dates: start: 20180119
  90. SOLU?MEDROL [Concomitant]
     Active Substance: METHYLPREDNISOLONE SODIUM SUCCINATE
  91. DEXTROMETHORPHAN [Concomitant]
     Active Substance: DEXTROMETHORPHAN
     Dates: start: 20200814
  92. LACTULOSE. [Concomitant]
     Active Substance: LACTULOSE
     Dates: start: 20191216
  93. SODIUM CHLORIDE. [Concomitant]
     Active Substance: SODIUM CHLORIDE
     Dates: start: 20191216
  94. CLONIDINE. [Concomitant]
     Active Substance: CLONIDINE
     Indication: HYPERTENSION
     Route: 048
     Dates: start: 2014, end: 2016
  95. SPIRONOLACTONE. [Concomitant]
     Active Substance: SPIRONOLACTONE
     Route: 065
  96. NEOSPORIN [Concomitant]
     Active Substance: BACITRACIN ZINC\NEOMYCIN SULFATE\POLYMYXIN B SULFATE
  97. MORPHINE [Concomitant]
     Active Substance: MORPHINE
  98. METRONIDAZOLE. [Concomitant]
     Active Substance: METRONIDAZOLE
  99. LIDOCAINE VISCOUS [Concomitant]
     Active Substance: LIDOCAINE HYDROCHLORIDE
  100. BELSOMRA [Concomitant]
     Active Substance: SUVOREXANT
  101. AUGMENTIN [Concomitant]
     Active Substance: AMOXICILLIN\CLAVULANATE POTASSIUM
  102. FLUOXETINE [Concomitant]
     Active Substance: FLUOXETINE HYDROCHLORIDE
     Dates: start: 20200814
  103. NEOMYCIN?POLYMYXIN [Concomitant]
     Dates: start: 20191216

REACTIONS (4)
  - Acute kidney injury [Not Recovered/Not Resolved]
  - Chronic kidney disease [Not Recovered/Not Resolved]
  - Renal failure [Unknown]
  - Renal tubular necrosis [Unknown]

NARRATIVE: CASE EVENT DATE: 20130806
